FAERS Safety Report 11908849 (Version 1)
Quarter: 2016Q1

REPORT INFORMATION
  Report Type: Spontaneous
  Country: CA (occurrence: CA)
  Receive Date: 20160111
  Receipt Date: 20160111
  Transmission Date: 20160526
  Serious: Yes (Hospitalization)
  Sender: FDA-Public Use
  Company Number: CA-TAKEDA-2016TUS000395

PATIENT
  Age: 31 Year
  Sex: Female
  Weight: 104.31 kg

DRUGS (9)
  1. TUMS                               /00193601/ [Suspect]
     Active Substance: CALCIUM CARBONATE\MAGNESIUM CARBONATE\MAGNESIUM TRISILICATE
     Indication: THROAT IRRITATION
     Dosage: UNK
     Route: 065
  2. ZOLOFT [Suspect]
     Active Substance: SERTRALINE HYDROCHLORIDE
     Indication: DEPRESSION
  3. GAVISCON                           /00237601/ [Suspect]
     Active Substance: ALUMINUM HYDROXIDE\MAGNESIUM CARBONATE
     Indication: OESOPHAGEAL IRRITATION
  4. DEXILANT [Suspect]
     Active Substance: DEXLANSOPRAZOLE
     Indication: OESOPHAGEAL IRRITATION
  5. DEXILANT [Suspect]
     Active Substance: DEXLANSOPRAZOLE
     Indication: THROAT IRRITATION
  6. DEXILANT [Suspect]
     Active Substance: DEXLANSOPRAZOLE
     Indication: EPIGASTRIC DISCOMFORT
     Dosage: UNK
     Route: 065
  7. GAVISCON                           /00237601/ [Suspect]
     Active Substance: ALUMINUM HYDROXIDE\MAGNESIUM CARBONATE
     Indication: THROAT IRRITATION
     Dosage: UNK
     Route: 065
  8. TUMS                               /00193601/ [Suspect]
     Active Substance: CALCIUM CARBONATE\MAGNESIUM CARBONATE\MAGNESIUM TRISILICATE
     Indication: OESOPHAGEAL IRRITATION
  9. ZOLOFT [Suspect]
     Active Substance: SERTRALINE HYDROCHLORIDE
     Indication: ANXIETY
     Dosage: 100 MG, QD
     Route: 048
     Dates: start: 20151103, end: 20151114

REACTIONS (2)
  - Drug ineffective [Recovered/Resolved]
  - Condition aggravated [Recovered/Resolved]

NARRATIVE: CASE EVENT DATE: 20151112
